FAERS Safety Report 22659220 (Version 1)
Quarter: 2023Q2

REPORT INFORMATION
  Report Type: Spontaneous
  Country: NL (occurrence: NL)
  Receive Date: 20230630
  Receipt Date: 20230630
  Transmission Date: 20230721
  Serious: Yes (Other)
  Sender: FDA-Public Use
  Company Number: None

PATIENT

DRUGS (3)
  1. FLUTICASONE FUROATE\VILANTEROL TRIFENATATE [Suspect]
     Active Substance: FLUTICASONE FUROATE\VILANTEROL TRIFENATATE
     Indication: Multiple allergies
     Dosage: 1 DF, QD
     Route: 065
     Dates: start: 20230318, end: 20230617
  2. FLUTICASONE FUROATE\VILANTEROL TRIFENATATE [Suspect]
     Active Substance: FLUTICASONE FUROATE\VILANTEROL TRIFENATATE
     Indication: Asthma
  3. VENTOLIN [Concomitant]
     Active Substance: ALBUTEROL SULFATE
     Indication: Product used for unknown indication
     Dosage: UNK, INHALATION POWDER, 200 ?G/DOSE (MICROGRAMS PER DOSE)
     Route: 065

REACTIONS (3)
  - Oedema peripheral [Recovering/Resolving]
  - Varicose vein [Recovering/Resolving]
  - Pain [Unknown]
